FAERS Safety Report 8603329-6 (Version None)
Quarter: 2012Q3

REPORT INFORMATION
  Report Type: 
  Country: None (occurrence: None)
  Receive Date: 20120817
  Receipt Date: 20120809
  Transmission Date: 20120928
  Serious: Yes (Other)
  Sender: FDA-Public Use
  Company Number: GB-CELGENEUS-167-21880-12080393

PATIENT
  Age: 76 Year
  Sex: Male
  Weight: 77.6 kg

DRUGS (3)
  1. DEXAMETHASONE [Suspect]
     Indication: MULTIPLE MYELOMA
     Route: 048
     Dates: start: 20120725, end: 20120728
  2. REVLIMID [Suspect]
     Indication: MULTIPLE MYELOMA
     Route: 048
     Dates: start: 20120725, end: 20120731
  3. CYCLOPHOSPHAMIDE [Suspect]
     Indication: MULTIPLE MYELOMA
     Route: 048
     Dates: start: 20120725, end: 20120725

REACTIONS (1)
  - MELANOCYTIC NAEVUS [None]
